FAERS Safety Report 15665036 (Version 2)
Quarter: 2018Q4

REPORT INFORMATION
  Report Type: Spontaneous
  Country: JP (occurrence: JP)
  Receive Date: 20181128
  Receipt Date: 20181204
  Transmission Date: 20190205
  Serious: Yes (Death, Hospitalization, Other)
  Sender: FDA-Public Use
  Company Number: JP-SA-2018SA313132

PATIENT
  Age: 74 Year
  Sex: Male
  Weight: 46.3 kg

DRUGS (4)
  1. FLUOROURACIL. [Concomitant]
     Active Substance: FLUOROURACIL
     Indication: COLON CANCER
     Dosage: 4 MG PER DOSE
     Route: 065
     Dates: start: 20181010
  2. ZALTRAP [Suspect]
     Active Substance: ZIV-AFLIBERCEPT
     Indication: COLON CANCER
     Dosage: 4 MG PER DOSE
     Route: 041
     Dates: start: 20181010
  3. IRINOTECAN HYDROCHLORIDE. [Concomitant]
     Active Substance: IRINOTECAN HYDROCHLORIDE
     Indication: COLON CANCER
     Dosage: 4 MG PER DOSE
     Route: 065
     Dates: start: 20181010
  4. CALCIUM LEVOFOLINATE [Suspect]
     Active Substance: LEVOLEUCOVORIN CALCIUM
     Indication: COLON CANCER
     Dosage: 4 MG PER DOSE
     Route: 065
     Dates: start: 20181010

REACTIONS (4)
  - General physical condition decreased [Fatal]
  - Abdominal pain [Unknown]
  - Gastrointestinal perforation [Fatal]
  - Pyrexia [Unknown]

NARRATIVE: CASE EVENT DATE: 201810
